FAERS Safety Report 21312054 (Version 1)
Quarter: 2022Q3

REPORT INFORMATION
  Report Type: Spontaneous
  Country: US (occurrence: None)
  Receive Date: 20220909
  Receipt Date: 20220909
  Transmission Date: 20221026
  Serious: No
  Sender: FDA-Public Use
  Company Number: US-ARIS GLOBAL-202204-0608

PATIENT
  Sex: Male

DRUGS (11)
  1. OXERVATE [Suspect]
     Active Substance: CENEGERMIN-BKBJ
     Indication: Neurotrophic keratopathy
     Route: 047
     Dates: start: 20220314
  2. LATANOPROST [Concomitant]
     Active Substance: LATANOPROST
  3. RHOPRESSA [Concomitant]
     Active Substance: NETARSUDIL MESYLATE
  4. BRIMONIDINE TARTRATE [Concomitant]
     Active Substance: BRIMONIDINE TARTRATE
  5. TELMISARTAN [Concomitant]
     Active Substance: TELMISARTAN
     Route: 048
  6. ACETAZOLAMIDE [Concomitant]
     Active Substance: ACETAZOLAMIDE
  7. DORZOLAMIDE\TIMOLOL [Concomitant]
     Active Substance: DORZOLAMIDE\TIMOLOL
  8. FML [Concomitant]
     Active Substance: FLUOROMETHOLONE
  9. BESIVANCE [Concomitant]
     Active Substance: BESIFLOXACIN
  10. ATORVASTATIN CALCIUM [Concomitant]
     Active Substance: ATORVASTATIN CALCIUM
     Route: 048
  11. METFORMIN HYDROCHLORIDE [Concomitant]
     Active Substance: METFORMIN HYDROCHLORIDE
     Route: 048

REACTIONS (1)
  - Product dose omission issue [Unknown]
